FAERS Safety Report 14561094 (Version 2)
Quarter: 2018Q1

REPORT INFORMATION
  Report Type: Spontaneous
  Country: ES (occurrence: ES)
  Receive Date: 20180222
  Receipt Date: 20180305
  Transmission Date: 20180509
  Serious: Yes (Hospitalization)
  Sender: FDA-Public Use
  Company Number: ES-ROCHE-2075809

PATIENT
  Age: 16 Year
  Sex: Female

DRUGS (1)
  1. XOLAIR [Suspect]
     Active Substance: OMALIZUMAB
     Indication: ASTHMA
     Route: 030
     Dates: start: 201611

REACTIONS (3)
  - Thyroiditis [Unknown]
  - Asthenia [Not Recovered/Not Resolved]
  - Thyroid mass [Not Recovered/Not Resolved]

NARRATIVE: CASE EVENT DATE: 201712
